FAERS Safety Report 8124400-1 (Version None)
Quarter: 2012Q1

REPORT INFORMATION
  Report Type: 
  Country: None (occurrence: None)
  Receive Date: 20120209
  Receipt Date: 20120206
  Transmission Date: 20120608
  Serious: Yes (Other)
  Sender: FDA-Public Use
  Company Number: US-TEVA-321600USA

PATIENT
  Sex: Male

DRUGS (3)
  1. PREDNISONE TAB [Suspect]
  2. COPAXONE [Suspect]
     Indication: MULTIPLE SCLEROSIS
     Dosage: 20 MILLIGRAM;
     Route: 058
     Dates: start: 20101215, end: 20111220
  3. TREANDA [Suspect]
     Indication: LYMPHOMA
     Dates: start: 20111201

REACTIONS (10)
  - FATIGUE [None]
  - HYPERHIDROSIS [None]
  - ASTHENIA [None]
  - PAIN [None]
  - DISORIENTATION [None]
  - CONVULSION [None]
  - APHASIA [None]
  - FEELING COLD [None]
  - URINARY INCONTINENCE [None]
  - BACK DISORDER [None]
